FAERS Safety Report 4293476-4 (Version None)
Quarter: 2004Q1

REPORT INFORMATION
  Report Type: 
  Country: None (occurrence: None)
  Receive Date: 20040210
  Receipt Date: 20040205
  Transmission Date: 20041129
  Serious: Yes (Death)
  Sender: FDA-Public Use
  Company Number: STA-AE-04-MTX-048

PATIENT
  Age: 68 Year
  Sex: Male

DRUGS (10)
  1. METHOTREXATE [Suspect]
     Indication: RHEUMATOID ARTHRITIS
     Dosage: 10 MG 1X PER 1 WK, ORAL
     Route: 048
     Dates: start: 20020201, end: 20031124
  2. REMICADE [Suspect]
     Indication: RHEUMATOID ARTHRITIS
     Dosage: 109 MG 1X PER 1 MONTH, INTRAVENOUS
     Route: 042
     Dates: start: 20020329, end: 20030811
  3. CELECTOL [Concomitant]
  4. FOLIC ACID [Concomitant]
  5. HYDROCORTISONE (HYDROCORTISONE HYDROGEN SUCCINATE) [Concomitant]
  6. VITAMIN D3 (COLECALCIFEROL) [Concomitant]
  7. CALCIUM (CALCIUM) [Concomitant]
  8. ISOBAR (METHYCLOTHIAZIDE/TRIMATERENE) [Concomitant]
  9. OMEPRAZOLE [Concomitant]
  10. KARDEGIC (ACETYLSALICYLATE LYSINE) [Concomitant]

REACTIONS (6)
  - ARTERIAL RUPTURE [None]
  - IMPLANT SITE INFECTION [None]
  - PNEUMONIA [None]
  - SALMONELLA SEPSIS [None]
  - SEPTIC SHOCK [None]
  - SHOCK HAEMORRHAGIC [None]
